FAERS Safety Report 16328381 (Version 1)
Quarter: 2019Q2

REPORT INFORMATION
  Report Type: Spontaneous
  Country: FR (occurrence: FR)
  Receive Date: 20190518
  Receipt Date: 20190518
  Transmission Date: 20190711
  Serious: Yes (Hospitalization)
  Sender: FDA-Public Use
  Company Number: FR-ACCORD-128085

PATIENT
  Age: 87 Year
  Sex: Female
  Weight: 65 kg

DRUGS (12)
  1. BETAHISTINE EG [Concomitant]
     Active Substance: BETAHISTINE
     Route: 048
  2. PRIMPERAN [Concomitant]
     Active Substance: METOCLOPRAMIDE HYDROCHLORIDE
     Route: 048
  3. GABAPENTIN ARROW GENERIC [Concomitant]
     Route: 048
  4. LASILIX [Concomitant]
     Active Substance: FUROSEMIDE
     Route: 048
  5. DIFFU K [Concomitant]
     Active Substance: POTASSIUM CHLORIDE
     Route: 048
  6. KARDEGIC [Concomitant]
     Active Substance: ASPIRIN DL-LYSINE
     Route: 048
  7. ALLOPURINOL ARROW [Concomitant]
     Active Substance: ALLOPURINOL
     Route: 048
  8. AMLODIPINE ARROW GENERIC [Concomitant]
     Route: 048
  9. ZAMUDOL L.P. [Concomitant]
     Active Substance: TRAMADOL HYDROCHLORIDE
     Route: 048
  10. FLUOROURACIL. [Suspect]
     Active Substance: FLUOROURACIL
     Indication: ADENOCARCINOMA
     Route: 041
     Dates: start: 20190122, end: 20190209
  11. CALCIUM LEVOFOLINATE [Suspect]
     Active Substance: LEVOLEUCOVORIN CALCIUM
     Indication: ADENOCARCINOMA
     Route: 042
     Dates: start: 20190208, end: 20190208
  12. LANSOPRAZOLE MYLAN [Concomitant]
     Active Substance: LANSOPRAZOLE
     Route: 048

REACTIONS (1)
  - Encephalopathy [Recovering/Resolving]

NARRATIVE: CASE EVENT DATE: 20190210
